FAERS Safety Report 24624503 (Version 1)
Quarter: 2024Q4

REPORT INFORMATION
  Report Type: Spontaneous
  Country: US (occurrence: None)
  Receive Date: 20241115
  Receipt Date: 20241115
  Transmission Date: 20250114
  Serious: Yes (Hospitalization)
  Sender: Public
  Company Number: None

PATIENT
  Sex: Female

DRUGS (11)
  1. BENLYSTA [Suspect]
     Active Substance: BELIMUMAB
     Indication: Systemic lupus erythematosus
     Dosage: FREQUENCY : WEEKLY;?
     Route: 058
     Dates: start: 20240604
  2. FAM0TIDINE [Concomitant]
  3. F0LIC ACID TAB 1MG [Concomitant]
  4. FUR0SEMIDE TAB 40MG [Concomitant]
  5. HYDR0XYCHL0R TAB 200MG [Concomitant]
  6. LISIN0PRIL TAB 10MG [Concomitant]
  7. LISIN0PRIL TAB 20MG [Concomitant]
  8. MET0PR0L TAR TAB 25MG [Concomitant]
  9. MYC0PHEN0LAT CAP 250MG [Concomitant]
  10. NIFEDIPINE TAB 30MG ER [Concomitant]
  11. ONDANSETR0N TAB 4MG ODT [Concomitant]

REACTIONS (2)
  - Diarrhoea [None]
  - Intentional dose omission [None]
